FAERS Safety Report 18099697 (Version 7)
Quarter: 2020Q4

REPORT INFORMATION
  Report Type: Report from Study
  Country: JP (occurrence: JP)
  Receive Date: 20200731
  Receipt Date: 20201230
  Transmission Date: 20210113
  Serious: Yes (Hospitalization, Other)
  Sender: FDA-Public Use
  Company Number: JP-PFIZER INC-2019-05606

PATIENT
  Age: 61 Year
  Sex: Male
  Weight: 64.1 kg

DRUGS (18)
  1. MEKTOVI [Suspect]
     Active Substance: BINIMETINIB
     Dosage: 45 MG, 2X/DAY (Q12H)
     Route: 048
     Dates: start: 20190425, end: 20190425
  2. OPDIVO [Suspect]
     Active Substance: NIVOLUMAB
     Dosage: UNK (UNK MG)
     Route: 041
     Dates: start: 20191028
  3. BRAFTOVI [Suspect]
     Active Substance: ENCORAFENIB
     Dosage: 450 MG, QOD
     Route: 048
     Dates: start: 20200503
  4. MEKTOVI [Suspect]
     Active Substance: BINIMETINIB
     Dosage: 45 MG, EVERY OTHER DAY
     Route: 048
     Dates: start: 20200503
  5. BRAFTOVI [Suspect]
     Active Substance: ENCORAFENIB
     Dosage: 450 MG, DAILY
     Route: 048
     Dates: start: 20190425, end: 20190425
  6. TAMIFLU [Suspect]
     Active Substance: OSELTAMIVIR PHOSPHATE
     Dosage: UNK
     Route: 065
  7. BRAFTOVI [Suspect]
     Active Substance: ENCORAFENIB
     Indication: MALIGNANT MELANOMA
     Dosage: 450 MG, DAILY
     Route: 048
     Dates: start: 20190418, end: 20190419
  8. MEKINIST [Suspect]
     Active Substance: TRAMETINIB DIMETHYL SULFOXIDE
     Indication: MALIGNANT MELANOMA
     Dosage: UNK
     Dates: start: 20190521
  9. YERVOY [Suspect]
     Active Substance: IPILIMUMAB
     Indication: MALIGNANT MELANOMA
     Dosage: 3 MG/KG/DOSE
     Route: 041
     Dates: start: 20181219, end: 20181219
  10. MEKTOVI [Suspect]
     Active Substance: BINIMETINIB
     Indication: MALIGNANT MELANOMA
     Dosage: 45 MG, 2X/DAY (Q12H)
     Route: 048
     Dates: start: 20190418, end: 20190419
  11. MEKTOVI [Suspect]
     Active Substance: BINIMETINIB
     Dosage: 30 MG, 2X/DAY
     Route: 048
     Dates: start: 20200205, end: 20200317
  12. MEKTOVI [Suspect]
     Active Substance: BINIMETINIB
     Dosage: 45 MG, 2X/DAY
     Route: 048
     Dates: start: 20200318
  13. OPDIVO [Suspect]
     Active Substance: NIVOLUMAB
     Dosage: 80 MG/BODY/DOSE
     Route: 041
     Dates: start: 20181219, end: 20181219
  14. BAKTAR [Suspect]
     Active Substance: SULFAMETHOXAZOLE\TRIMETHOPRIM
     Dosage: UNK
     Route: 065
  15. BRAFTOVI [Suspect]
     Active Substance: ENCORAFENIB
     Dosage: 300 MG, DAILY
     Route: 048
     Dates: start: 20200205, end: 20200317
  16. BRAFTOVI [Suspect]
     Active Substance: ENCORAFENIB
     Dosage: 450 MG, DAILY
     Route: 048
     Dates: start: 20200318
  17. OPDIVO [Suspect]
     Active Substance: NIVOLUMAB
     Indication: MALIGNANT MELANOMA
     Dosage: UNK
     Route: 041
     Dates: end: 20181128
  18. TAFINLAR [Suspect]
     Active Substance: DABRAFENIB MESYLATE
     Indication: MALIGNANT MELANOMA
     Dosage: UNK
     Route: 065
     Dates: start: 20190521

REACTIONS (12)
  - Serous retinal detachment [Recovering/Resolving]
  - Rhabdomyolysis [Recovering/Resolving]
  - Acute kidney injury [Recovering/Resolving]
  - Serous retinal detachment [Unknown]
  - Liver disorder [Unknown]
  - Serous retinal detachment [Recovering/Resolving]
  - Cystoid macular oedema [Recovering/Resolving]
  - Serous retinal detachment [Recovering/Resolving]
  - Vomiting [Unknown]
  - Enterocolitis [Recovering/Resolving]
  - Abdominal discomfort [Unknown]
  - Pyrexia [Recovering/Resolving]

NARRATIVE: CASE EVENT DATE: 20181226
